FAERS Safety Report 18543980 (Version 2)
Quarter: 2020Q4

REPORT INFORMATION
  Report Type: Report from Study
  Country: JP (occurrence: JP)
  Receive Date: 20201124
  Receipt Date: 20201225
  Transmission Date: 20210114
  Serious: Yes (Other)
  Sender: FDA-Public Use
  Company Number: JP-CELLTRION INC.-2020JP032313

PATIENT

DRUGS (25)
  1. CISPLATIN. [Suspect]
     Active Substance: CISPLATIN
     Dosage: 99 MG, QD
     Route: 041
     Dates: start: 20191023, end: 20191023
  2. XELODA [Suspect]
     Active Substance: CAPECITABINE
     Dosage: 3600 MG, QD
     Route: 048
     Dates: start: 20191023, end: 20191106
  3. XELODA [Suspect]
     Active Substance: CAPECITABINE
     Dosage: 3600 MG, QD
     Route: 048
     Dates: start: 20191115, end: 20191129
  4. CISPLATIN. [Suspect]
     Active Substance: CISPLATIN
     Dosage: 99 MG, QD
     Route: 041
     Dates: start: 20200114, end: 20200114
  5. EMEND [Concomitant]
     Active Substance: APREPITANT
     Indication: PROPHYLAXIS OF NAUSEA AND VOMITING
     Dosage: UNK
     Dates: start: 20190724, end: 20200116
  6. HIRUDOID [Concomitant]
     Active Substance: GLYCOSAMINOGLYCANS
     Indication: SKIN DISORDER PROPHYLAXIS
     Dosage: UNK
     Dates: start: 20190725, end: 20200217
  7. CT-P6 [Suspect]
     Active Substance: INVESTIGATIONAL BIOSIMILARS
     Dosage: 360 MG, QD
     Route: 041
     Dates: start: 20200114, end: 20200114
  8. CISPLATIN. [Suspect]
     Active Substance: CISPLATIN
     Dosage: 97 MG, QD
     Route: 041
     Dates: start: 20190821, end: 20190821
  9. CISPLATIN. [Suspect]
     Active Substance: CISPLATIN
     Dosage: 99 MG, QD
     Route: 041
     Dates: start: 20191218, end: 20191218
  10. XELODA [Suspect]
     Active Substance: CAPECITABINE
     Dosage: 3600 MG, QD
     Route: 048
     Dates: start: 20191218, end: 20200101
  11. CT-P6 [Suspect]
     Active Substance: INVESTIGATIONAL BIOSIMILARS
     Indication: HER2 POSITIVE GASTRIC CANCER
     Dosage: 500 MG, QD
     Route: 041
     Dates: start: 20190724, end: 20190724
  12. CT-P6 [Suspect]
     Active Substance: INVESTIGATIONAL BIOSIMILARS
     Dosage: 360 MG, QD
     Route: 041
     Dates: start: 20191023, end: 20191023
  13. CISPLATIN. [Suspect]
     Active Substance: CISPLATIN
     Indication: HER2 POSITIVE GASTRIC CANCER
     Dosage: 130 MG, QD
     Route: 041
     Dates: start: 20190724, end: 20190724
  14. CISPLATIN. [Suspect]
     Active Substance: CISPLATIN
     Dosage: 99 MG, QD
     Route: 041
     Dates: start: 20190925, end: 20190925
  15. XELODA [Suspect]
     Active Substance: CAPECITABINE
     Indication: HER2 POSITIVE GASTRIC CANCER
     Dosage: 3600 MG, QD
     Route: 048
     Dates: start: 20190724, end: 20190807
  16. NOVAMIN [Concomitant]
     Indication: NAUSEA
     Dosage: UNK, FROM UNKNOWN DATE TO 20-JAN-2020
  17. CT-P6 [Suspect]
     Active Substance: INVESTIGATIONAL BIOSIMILARS
     Dosage: 370 MG, QD
     Route: 041
     Dates: start: 20190821, end: 20190821
  18. CT-P6 [Suspect]
     Active Substance: INVESTIGATIONAL BIOSIMILARS
     Dosage: 360 MG, QD
     Route: 041
     Dates: start: 20191218, end: 20191218
  19. XELODA [Suspect]
     Active Substance: CAPECITABINE
     Dosage: 3600 MG, QD
     Route: 048
     Dates: start: 20190821, end: 20190904
  20. XELODA [Suspect]
     Active Substance: CAPECITABINE
     Dosage: 3600 MG, QD
     Route: 048
     Dates: start: 20190925, end: 20191009
  21. CISPLATIN. [Suspect]
     Active Substance: CISPLATIN
     Dosage: 99 MG, QD
     Route: 041
     Dates: start: 20191115, end: 20191115
  22. XELODA [Suspect]
     Active Substance: CAPECITABINE
     Dosage: 3600 MG, QD
     Route: 048
     Dates: start: 20200114, end: 20200128
  23. NEXIUM [Concomitant]
     Active Substance: ESOMEPRAZOLE MAGNESIUM
     Indication: GASTROOESOPHAGEAL REFLUX DISEASE
     Dosage: UNK
     Dates: start: 20181025, end: 20190904
  24. CT-P6 [Suspect]
     Active Substance: INVESTIGATIONAL BIOSIMILARS
     Dosage: 360 MG, QD
     Route: 041
     Dates: start: 20190925, end: 20190925
  25. CT-P6 [Suspect]
     Active Substance: INVESTIGATIONAL BIOSIMILARS
     Dosage: 360 MG, QD
     Route: 041
     Dates: start: 20191115, end: 20191115

REACTIONS (9)
  - White blood cell count decreased [Recovered/Resolved]
  - Anaemia [Recovering/Resolving]
  - Underdose [Unknown]
  - Nausea [Recovering/Resolving]
  - Product use issue [Unknown]
  - Insomnia [Unknown]
  - Pulmonary artery thrombosis [Recovered/Resolved]
  - Constipation [Unknown]
  - Neutrophil count decreased [Recovered/Resolved]

NARRATIVE: CASE EVENT DATE: 20190725
